FAERS Safety Report 23867852 (Version 1)
Quarter: 2024Q2

REPORT INFORMATION
  Report Type: Spontaneous
  Country: CH (occurrence: CH)
  Receive Date: 20240517
  Receipt Date: 20240517
  Transmission Date: 20240716
  Serious: Yes (Hospitalization, Other)
  Sender: FDA-Public Use
  Company Number: None

PATIENT
  Age: 80 Year
  Sex: Male
  Weight: 80.8 kg

DRUGS (2)
  1. ENOXAPARIN SODIUM [Suspect]
     Active Substance: ENOXAPARIN SODIUM
     Dosage: 40 MG, TOTAL
     Dates: start: 20240419, end: 20240419
  2. ASPIRIN [Suspect]
     Active Substance: ASPIRIN
     Dosage: 100MG QD

REACTIONS (3)
  - Gastrointestinal haemorrhage [Recovering/Resolving]
  - Normochromic normocytic anaemia [Recovering/Resolving]
  - Melaena [Recovering/Resolving]

NARRATIVE: CASE EVENT DATE: 20240419
